FAERS Safety Report 8473553-4 (Version None)
Quarter: 2012Q2

REPORT INFORMATION
  Report Type: 
  Country: None (occurrence: None)
  Receive Date: 20120628
  Receipt Date: 20110809
  Transmission Date: 20120825
  Serious: Yes (Other)
  Sender: FDA-Public Use
  Company Number: US-MYLANLABS-2011S1010419

PATIENT
  Age: 45 Year
  Sex: Female
  Weight: 68.04 kg

DRUGS (12)
  1. DOCUSATE [Concomitant]
  2. DIAZEPAM [Concomitant]
  3. CLOZAPINE [Suspect]
     Indication: SCHIZOPHRENIA, PARANOID TYPE
     Dates: end: 20110613
  4. CLOZAPINE [Suspect]
     Dates: end: 20110801
  5. CLOZAPINE [Suspect]
     Dates: end: 20110801
  6. GEODON [Concomitant]
  7. NAMENDA [Concomitant]
     Indication: DEMENTIA
  8. CLOZAPINE [Suspect]
     Dates: start: 20110801
  9. TRICOR [Concomitant]
  10. VITAMIN E [Concomitant]
  11. CLOZAPINE [Suspect]
     Dates: start: 20110614, end: 20110713
  12. LEVOTHROID [Concomitant]
     Indication: HYPOTHYROIDISM

REACTIONS (2)
  - GRANULOCYTOPENIA [None]
  - LEUKOPENIA [None]
